FAERS Safety Report 18367235 (Version 1)
Quarter: 2020Q4

REPORT INFORMATION
  Report Type: Spontaneous
  Country: FR (occurrence: FR)
  Receive Date: 20201009
  Receipt Date: 20201009
  Transmission Date: 20210114
  Serious: Yes (Life-Threatening, Hospitalization)
  Sender: FDA-Public Use
  Company Number: FR-BAUSCH-BL-2020-028174

PATIENT
  Age: 48 Year
  Sex: Male

DRUGS (3)
  1. BACTRIM [Suspect]
     Active Substance: SULFAMETHOXAZOLE\TRIMETHOPRIM
     Indication: STAPHYLOCOCCAL BACTERAEMIA
     Route: 065
     Dates: start: 20170816
  2. DAFALGAN [Concomitant]
     Active Substance: ACETAMINOPHEN
     Indication: PRODUCT USED FOR UNKNOWN INDICATION
     Dates: start: 20170804
  3. CLINDAMYCIN. [Suspect]
     Active Substance: CLINDAMYCIN
     Indication: STAPHYLOCOCCAL BACTERAEMIA
     Route: 065
     Dates: start: 20170816

REACTIONS (9)
  - Pulmonary mass [Unknown]
  - Haematuria [Unknown]
  - Hyperleukocytosis [Unknown]
  - Pyrexia [Unknown]
  - Sepsis [Unknown]
  - C-reactive protein increased [Unknown]
  - Abdominal pain [Unknown]
  - Diarrhoea [Unknown]
  - Skin lesion [Unknown]

NARRATIVE: CASE EVENT DATE: 20170824
